FAERS Safety Report 6408462-5 (Version None)
Quarter: 2009Q4

REPORT INFORMATION
  Report Type: 
  Country: None (occurrence: None)
  Receive Date: 20091021
  Receipt Date: 20091016
  Transmission Date: 20100525
  Serious: Yes (Hospitalization)
  Sender: FDA-Public Use
  Company Number: AU-BRISTOL-MYERS SQUIBB COMPANY-14824098

PATIENT
  Age: 35 Year
  Sex: Male

DRUGS (2)
  1. EFAVIRENZ [Suspect]
     Route: 065
  2. REYATAZ [Suspect]
     Dosage: BOOSTER REYATAZ
     Route: 065

REACTIONS (2)
  - CARDIAC FAILURE CONGESTIVE [None]
  - CARDIOMYOPATHY [None]
